FAERS Safety Report 15084948 (Version 1)
Quarter: 2018Q2

REPORT INFORMATION
  Report Type: Report from Study
  Country: MX (occurrence: MX)
  Receive Date: 20180628
  Receipt Date: 20180628
  Transmission Date: 20180711
  Serious: Yes (Other)
  Sender: FDA-Public Use
  Company Number: MX-BAYER-2018-070973

PATIENT
  Age: 55 Year
  Sex: Female
  Weight: 50 kg

DRUGS (5)
  1. NEXAVAR [Suspect]
     Active Substance: SORAFENIB
     Indication: HEPATOCELLULAR CARCINOMA
     Dosage: 600 MG, QD
     Route: 048
  2. LOPERAMIDE [Concomitant]
     Active Substance: LOPERAMIDE
  3. PARACETAMOL [Concomitant]
     Active Substance: ACETAMINOPHEN
  4. NEXAVAR [Suspect]
     Active Substance: SORAFENIB
     Indication: HEPATOCELLULAR CARCINOMA
     Dosage: 800 MG, QD
     Route: 048
     Dates: start: 20170514
  5. TRAMADOL. [Concomitant]
     Active Substance: TRAMADOL

REACTIONS (24)
  - Injury [Not Recovered/Not Resolved]
  - Chills [Not Recovered/Not Resolved]
  - Blood alkaline phosphatase increased [Not Recovered/Not Resolved]
  - Discomfort [Not Recovered/Not Resolved]
  - Skin discomfort [Not Recovered/Not Resolved]
  - Off label use [Not Recovered/Not Resolved]
  - Renal disorder [Not Recovered/Not Resolved]
  - Infection [Not Recovered/Not Resolved]
  - Neck pain [Not Recovered/Not Resolved]
  - Pain [Recovering/Resolving]
  - Fatigue [None]
  - Discomfort [Not Recovered/Not Resolved]
  - Hyperkeratosis [Not Recovered/Not Resolved]
  - Dyspnoea [Recovering/Resolving]
  - Depression [Not Recovered/Not Resolved]
  - Pain in extremity [Not Recovered/Not Resolved]
  - Pain of skin [Not Recovered/Not Resolved]
  - Chest pain [Recovering/Resolving]
  - Feeling of despair [Not Recovered/Not Resolved]
  - Diarrhoea [None]
  - Back pain [Recovering/Resolving]
  - Anxiety [Not Recovered/Not Resolved]
  - Dehydration [Not Recovered/Not Resolved]
  - Abdominal discomfort [Not Recovered/Not Resolved]

NARRATIVE: CASE EVENT DATE: 20170514
